FAERS Safety Report 7302498-8 (Version None)
Quarter: 2011Q1

REPORT INFORMATION
  Report Type: 
  Country: None (occurrence: None)
  Receive Date: 20110218
  Receipt Date: 20110216
  Transmission Date: 20110831
  Serious: No
  Sender: FDA-Public Use
  Company Number: US-PFIZER INC-2011034979

PATIENT
  Sex: Female
  Weight: 56.236 kg

DRUGS (4)
  1. CHANTIX [Suspect]
     Indication: SMOKING CESSATION THERAPY
     Dosage: 0.5 MG, 1X/DAY
     Route: 048
     Dates: start: 20110101
  2. CHANTIX [Suspect]
     Dosage: 1 MG, UNK
     Dates: start: 20110101
  3. ASPIRIN [Concomitant]
     Indication: ARTERIAL THERAPEUTIC PROCEDURE
     Dosage: UNK, DAILY
  4. CHANTIX [Suspect]
     Dosage: 0.5 MG, 1X/DAY
     Route: 048
     Dates: start: 20070101

REACTIONS (2)
  - BLOOD CHOLESTEROL INCREASED [None]
  - EMOTIONAL DISORDER [None]
